FAERS Safety Report 8014456-9 (Version None)
Quarter: 2011Q4

REPORT INFORMATION
  Report Type: 
  Country: None (occurrence: None)
  Receive Date: 20111229
  Receipt Date: 20111223
  Transmission Date: 20120403
  Serious: Yes (Death)
  Sender: FDA-Public Use
  Company Number: US-BAYER-2011-094944

PATIENT
  Age: 42 Year
  Sex: Female
  Weight: 106.58 kg

DRUGS (11)
  1. TAMIFLU [Concomitant]
     Dosage: 75 MG, BID
  2. DEPO-MEDROL [Suspect]
     Dosage: 80 MG/ML, UNK
  3. YAZ [Suspect]
     Indication: MENSTRUATION IRREGULAR
     Dosage: UNK
     Dates: start: 20090601, end: 20090901
  4. YAZ [Suspect]
  5. FLECTOR [Concomitant]
     Dosage: UNK UNK, QD
     Dates: start: 20090613
  6. AUGMENTIN [Concomitant]
     Dosage: UNK UNK, BID
     Route: 048
  7. NASONEX [Concomitant]
     Dosage: 100 MCG/24HR, UNK
  8. PROVENTIL-HFA [Concomitant]
     Dosage: 360 MCG/24HR, UNK
  9. CLARITIN-D [Concomitant]
     Dosage: UNK UNK, QD
  10. MELOXICAM [Concomitant]
     Dosage: 7.5 MG, QD
  11. LIDOCAINE [Concomitant]
     Dosage: 1 %, UNK
     Dates: start: 20090814

REACTIONS (2)
  - PULMONARY EMBOLISM [None]
  - DEEP VEIN THROMBOSIS [None]
